FAERS Safety Report 9465899 (Version 1)
Quarter: 2013Q3

REPORT INFORMATION
  Report Type: Report from Study
  Country: CN (occurrence: CN)
  Receive Date: 20130820
  Receipt Date: 20130820
  Transmission Date: 20140515
  Serious: Yes (Death, Disabling, Other)
  Sender: FDA-Public Use
  Company Number: CN-ASTELLAS-2013US008836

PATIENT
  Age: 60 Year
  Sex: Male

DRUGS (1)
  1. ERLOTINIB TABLET [Suspect]
     Indication: NON-SMALL CELL LUNG CANCER
     Dosage: 150 MG, UID/QD
     Route: 048
     Dates: start: 20120201

REACTIONS (6)
  - Death [Fatal]
  - Convulsion [Unknown]
  - Aphasia [Unknown]
  - Dysuria [Unknown]
  - Metastases to bone [Unknown]
  - Tremor [Unknown]
